FAERS Safety Report 8244590-X (Version None)
Quarter: 2012Q1

REPORT INFORMATION
  Report Type: 
  Country: None (occurrence: None)
  Receive Date: 20120329
  Receipt Date: 20120326
  Transmission Date: 20120608
  Serious: Yes (Death, Hospitalization)
  Sender: FDA-Public Use
  Company Number: US-CELGENEUS-163-21880-12010264

PATIENT
  Sex: Male
  Weight: 68.554 kg

DRUGS (13)
  1. SYNTHROID [Concomitant]
     Dosage: .15 MILLIGRAM
     Route: 065
  2. FLUCONAZOLE [Concomitant]
     Route: 065
  3. PREDNISONE TAB [Concomitant]
     Route: 065
     Dates: start: 20090407
  4. PREDNISONE TAB [Concomitant]
     Route: 065
  5. NYSTATIN [Concomitant]
     Route: 065
  6. ZOCOR [Concomitant]
     Route: 065
  7. PRILOSEC [Concomitant]
     Route: 065
  8. TESTIM [Concomitant]
     Route: 065
  9. ULTRAM [Concomitant]
     Indication: PAIN
     Route: 065
  10. VITAMIN D [Concomitant]
     Route: 065
  11. TESTOSTERONE [Concomitant]
     Route: 062
  12. REVLIMID [Suspect]
     Indication: MYELODYSPLASTIC SYNDROME
     Dosage: 10 MILLIGRAM
     Route: 048
     Dates: start: 20111014, end: 20111229
  13. TRANSFUSION [Concomitant]
     Route: 065

REACTIONS (4)
  - FEBRILE NEUTROPENIA [None]
  - PNEUMONIA [None]
  - CLOSTRIDIUM DIFFICILE COLITIS [None]
  - PANCYTOPENIA [None]
